FAERS Safety Report 5411761-7 (Version None)
Quarter: 2007Q3

REPORT INFORMATION
  Report Type: 
  Country: None (occurrence: None)
  Receive Date: 20070813
  Receipt Date: 20070808
  Transmission Date: 20080115
  Serious: Yes (Life-Threatening, Hospitalization, Other)
  Sender: FDA-Public Use
  Company Number: PHBS2007BR13285

PATIENT
  Age: 55 Year
  Sex: Male
  Weight: 90 kg

DRUGS (2)
  1. VOLTAREN [Suspect]
     Indication: TOOTHACHE
     Route: 030
     Dates: start: 20061201, end: 20070101
  2. ASCORBIC ACID [Concomitant]
     Indication: INFLUENZA

REACTIONS (4)
  - JOINT SWELLING [None]
  - PAIN IN EXTREMITY [None]
  - THROMBOSIS [None]
  - TOOTH FRACTURE [None]
